FAERS Safety Report 5375322-0 (Version None)
Quarter: 2007Q2

REPORT INFORMATION
  Report Type: 
  Country: None (occurrence: None)
  Receive Date: 20070629
  Receipt Date: 20070618
  Transmission Date: 20071010
  Serious: Yes (Other)
  Sender: FDA-Public Use
  Company Number: GB-PFIZER INC-2007051134

PATIENT
  Sex: Male

DRUGS (2)
  1. CABASER [Suspect]
     Indication: PARKINSON'S DISEASE
  2. ASPIRIN [Concomitant]

REACTIONS (4)
  - ANGINA PECTORIS [None]
  - CHEST PAIN [None]
  - OESOPHAGEAL PAIN [None]
  - OESOPHAGEAL SPASM [None]
